FAERS Safety Report 25583577 (Version 1)
Quarter: 2025Q3

REPORT INFORMATION
  Report Type: Spontaneous
  Country: US (occurrence: US)
  Receive Date: 20250721
  Receipt Date: 20250721
  Transmission Date: 20251021
  Serious: Yes (Death)
  Sender: CHIESI
  Company Number: US-CHIESI-2025CHF04935

PATIENT
  Age: 86 Year
  Sex: Male
  Weight: 43 kg

DRUGS (2)
  1. FERRIPROX [Suspect]
     Active Substance: DEFERIPRONE
     Indication: Thalassaemia minor
     Dosage: 10 MILLILITER, BID
     Route: 048
     Dates: start: 20231011
  2. FERRIPROX [Suspect]
     Active Substance: DEFERIPRONE
     Indication: Iron metabolism disorder

REACTIONS (3)
  - Prostate cancer [Fatal]
  - Off label use [Recovered/Resolved]
  - Off label use [Recovered/Resolved]

NARRATIVE: CASE EVENT DATE: 20231011
